FAERS Safety Report 8810358 (Version 1)
Quarter: 2012Q4

REPORT INFORMATION
  Report Type: 
  Country: US (occurrence: US)
  Receive Date: 20120926
  Receipt Date: 20120926
  Transmission Date: 20130627
  Serious: No
  Sender: FDA-Public Use
  Company Number: US-009507513-1209USA003122

PATIENT
  Sex: Female

DRUGS (1)
  1. AZASITE [Suspect]
     Indication: BLEPHARITIS
     Dosage: one drop in each eye in the evening
     Route: 047
     Dates: start: 20120709

REACTIONS (3)
  - Incorrect drug administration duration [Unknown]
  - Incorrect storage of drug [Unknown]
  - No adverse event [Unknown]
